FAERS Safety Report 21037213 (Version 1)
Quarter: 2022Q3

REPORT INFORMATION
  Report Type: Spontaneous
  Country: US (occurrence: US)
  Receive Date: 20220703
  Receipt Date: 20220703
  Transmission Date: 20221027
  Serious: No
  Sender: FDA-Public Use
  Company Number: US-SA-SAC20220629000632

PATIENT
  Age: 24 Year
  Sex: Male

DRUGS (1)
  1. DUPIXENT [Suspect]
     Active Substance: DUPILUMAB
     Dosage: FREQUENCY- OTHER
     Route: 058
     Dates: start: 20211221

REACTIONS (1)
  - Mass [Recovering/Resolving]

NARRATIVE: CASE EVENT DATE: 20220530
